FAERS Safety Report 7575965-X (Version None)
Quarter: 2011Q2

REPORT INFORMATION
  Report Type: 
  Country: None (occurrence: None)
  Receive Date: 20110628
  Receipt Date: 20110530
  Transmission Date: 20111010
  Serious: Yes (Hospitalization, Other)
  Sender: FDA-Public Use
  Company Number: US-BAYER-201024071NA

PATIENT
  Age: 51 Year
  Sex: Female
  Weight: 75.283 kg

DRUGS (1)
  1. YASMIN [Suspect]
     Dosage: UNK UNK, UNK
     Route: 048
     Dates: start: 20060101, end: 20080101

REACTIONS (6)
  - GALLBLADDER DISORDER [None]
  - CHOLECYSTITIS ACUTE [None]
  - CHOLELITHIASIS [None]
  - INJURY [None]
  - CHOLECYSTITIS CHRONIC [None]
  - ORGAN FAILURE [None]
